FAERS Safety Report 10619327 (Version 2)
Quarter: 2015Q2

REPORT INFORMATION
  Report Type: Spontaneous
  Country: US (occurrence: US)
  Receive Date: 20141202
  Receipt Date: 20150508
  Transmission Date: 20150821
  Serious: No
  Sender: FDA-Public Use
  Company Number: US-009507513-1411USA010905

PATIENT
  Age: 24 Year
  Sex: Female

DRUGS (2)
  1. VECURONIUM BROMIDE. [Suspect]
     Active Substance: VECURONIUM BROMIDE
     Indication: ALLERGY TEST
     Route: 059
  2. ROCURONIUM BROMIDE. [Suspect]
     Active Substance: ROCURONIUM BROMIDE
     Indication: ALLERGY TEST
     Route: 059

REACTIONS (1)
  - Drug hypersensitivity [Unknown]
